FAERS Safety Report 7768690-3 (Version None)
Quarter: 2011Q3

REPORT INFORMATION
  Report Type: 
  Country: None (occurrence: None)
  Receive Date: 20110922
  Receipt Date: 20101227
  Transmission Date: 20111222
  Serious: No
  Sender: FDA-Public Use
  Company Number: US-ASTRAZENECA-2010SE60893

PATIENT
  Age: 18 Year
  Sex: Male

DRUGS (1)
  1. SEROQUEL XR [Suspect]
     Indication: SCHIZOTYPAL PERSONALITY DISORDER
     Route: 048

REACTIONS (2)
  - AGITATION [None]
  - IRRITABILITY [None]
